FAERS Safety Report 17718355 (Version 1)
Quarter: 2020Q2

REPORT INFORMATION
  Report Type: Report from Study
  Country: US (occurrence: US)
  Receive Date: 20200428
  Receipt Date: 20200428
  Transmission Date: 20200714
  Serious: Yes (Hospitalization)
  Sender: FDA-Public Use
  Company Number: US-EISAI MEDICAL RESEARCH-EC-2019-067172

PATIENT
  Age: 57 Year
  Sex: Female
  Weight: 56 kg

DRUGS (20)
  1. SODIUM BICARBONATE. [Concomitant]
     Active Substance: SODIUM BICARBONATE
  2. ADVIL [Concomitant]
     Active Substance: IBUPROFEN
  3. TRAMADOL HCL [Concomitant]
     Active Substance: TRAMADOL HYDROCHLORIDE
  4. PIOGLITAZONE. [Concomitant]
     Active Substance: PIOGLITAZONE
  5. BENADRYL [Concomitant]
     Active Substance: DIPHENHYDRAMINE HYDROCHLORIDE
  6. KEYTRUDA [Concomitant]
     Active Substance: PEMBROLIZUMAB
  7. LENVIMA [Suspect]
     Active Substance: LENVATINIB
     Route: 048
     Dates: start: 2020, end: 202004
  8. ACETAMINOPHEN. [Concomitant]
     Active Substance: ACETAMINOPHEN
  9. METFORMIN HCL [Concomitant]
     Active Substance: METFORMIN HYDROCHLORIDE
  10. BENAZEPRIL [Concomitant]
     Active Substance: BENAZEPRIL HYDROCHLORIDE
  11. GABAPENTIN. [Concomitant]
     Active Substance: GABAPENTIN
  12. LENVIMA [Suspect]
     Active Substance: LENVATINIB
     Indication: ENDOMETRIAL CANCER
     Route: 048
     Dates: start: 20191204, end: 202003
  13. BYSTOLIC [Concomitant]
     Active Substance: NEBIVOLOL HYDROCHLORIDE
  14. AMLODIPINE BESYLATE. [Concomitant]
     Active Substance: AMLODIPINE BESYLATE
  15. ROSUVASTATIN CALCIUM. [Concomitant]
     Active Substance: ROSUVASTATIN CALCIUM
  16. FERROUS SULFATE. [Concomitant]
     Active Substance: FERROUS SULFATE
  17. GLIMEPIRIDE. [Concomitant]
     Active Substance: GLIMEPIRIDE
  18. OMEPRAZOLE. [Concomitant]
     Active Substance: OMEPRAZOLE
  19. OLMESARTAN-AMLODIPINE-HCTZ [Concomitant]
  20. SALINE MIST [Concomitant]
     Active Substance: SODIUM CHLORIDE

REACTIONS (17)
  - Abdominal pain upper [Unknown]
  - Decreased appetite [Unknown]
  - Ageusia [Unknown]
  - Increased appetite [Unknown]
  - Pain in extremity [Unknown]
  - Renal impairment [Unknown]
  - Dysphagia [Not Recovered/Not Resolved]
  - Abdominal pain [Unknown]
  - Stomatitis [Not Recovered/Not Resolved]
  - Nasopharyngitis [Recovered/Resolved]
  - Blood pressure increased [Unknown]
  - Nausea [Not Recovered/Not Resolved]
  - Vomiting [Unknown]
  - Malaise [Unknown]
  - Fatigue [Unknown]
  - Weight decreased [Unknown]
  - Urinary tract infection [Unknown]

NARRATIVE: CASE EVENT DATE: 201912
